FAERS Safety Report 10156566 (Version 3)
Quarter: 2014Q2

REPORT INFORMATION
  Report Type: Report from Study
  Country: US (occurrence: US)
  Receive Date: 20140507
  Receipt Date: 20140509
  Transmission Date: 20141212
  Serious: Yes (Death, Hospitalization)
  Sender: FDA-Public Use
  Company Number: US-ROCHE-1392497

PATIENT
  Age: 64 Year
  Sex: Male
  Weight: 99.2 kg

DRUGS (12)
  1. BEVACIZUMAB [Suspect]
     Indication: OESOPHAGEAL CANCER METASTATIC
     Route: 065
     Dates: start: 20110426, end: 20120521
  2. TRASTUZUMAB [Suspect]
     Indication: OESOPHAGEAL CANCER METASTATIC
     Dosage: LAST DOSE PRIOR TO SAE: 08/APR/2014.
     Route: 065
     Dates: start: 20110426
  3. CAPECITABINE [Suspect]
     Indication: OESOPHAGEAL CANCER METASTATIC
     Dosage: LAST DOSE PRIOR TO SAE: 22/APR/2014.
     Route: 042
     Dates: start: 20110426
  4. CAPECITABINE [Suspect]
     Route: 048
     Dates: start: 20110503
  5. OXALIPLATIN [Suspect]
     Indication: OESOPHAGEAL CANCER METASTATIC
     Route: 065
     Dates: start: 20110426, end: 20120124
  6. ASPIRIN [Concomitant]
  7. CIALIS [Concomitant]
  8. DTO (UNITED STATES) [Concomitant]
  9. LOMOTIL (UNITED STATES) [Concomitant]
  10. LOVASTATIN [Concomitant]
  11. OMEPRAZOLE [Concomitant]
  12. ZOFRAN [Concomitant]

REACTIONS (1)
  - Death [Fatal]
